FAERS Safety Report 8187009 (Version 5)
Quarter: 2013Q2

REPORT INFORMATION
  Report Type: Spontaneous
  Country: US (occurrence: US)
  Receive Date: 20111018
  Receipt Date: 20130503
  Transmission Date: 20140414
  Serious: Yes (Hospitalization, Other)
  Sender: FDA-Public Use
  Company Number: US-ASTRAZENECA-2010SE11421

PATIENT
  Age: 88 Year
  Sex: Female

DRUGS (4)
  1. SYMBICORT PMDI [Suspect]
     Dosage: 160/4.5 MCG UNKNOWN
     Route: 055
  2. NEXIUM [Suspect]
     Route: 048
  3. ADVIL [Concomitant]
  4. ALEVE [Concomitant]

REACTIONS (10)
  - Fall [Unknown]
  - Ankle fracture [Unknown]
  - Chronic obstructive pulmonary disease [Unknown]
  - Gastrooesophageal reflux disease [Unknown]
  - Feeling abnormal [Unknown]
  - Joint injury [Unknown]
  - Musculoskeletal pain [Unknown]
  - Dysphonia [Unknown]
  - Malaise [Unknown]
  - Drug effect increased [Unknown]
